FAERS Safety Report 5368850-5 (Version None)
Quarter: 2007Q2

REPORT INFORMATION
  Report Type: 
  Country: None (occurrence: None)
  Receive Date: 20070621
  Receipt Date: 20070621
  Transmission Date: 20071010
  Serious: Yes (Hospitalization)
  Sender: FDA-Public Use
  Company Number: None

PATIENT
  Sex: Male
  Weight: 82.1011 kg

DRUGS (2)
  1. BEVACIZUMAB 25MG/ML GENENTECH [Suspect]
     Indication: SMALL CELL LUNG CANCER STAGE UNSPECIFIED
     Dosage: 823 MG EVERY OTHER WEEK IV DRIP
     Route: 041
     Dates: start: 20070130, end: 20070606
  2. PACLITAXEL 6/ML BMS [Suspect]
     Indication: SMALL CELL LUNG CANCER STAGE UNSPECIFIED
     Dosage: 90MG/M2 WKLY 3 OUT OF 4 IV DRIP
     Route: 041
     Dates: start: 20070130, end: 20070606

REACTIONS (5)
  - COUGH [None]
  - DYSPHAGIA [None]
  - DYSPNOEA [None]
  - RESPIRATORY DISTRESS [None]
  - TRACHEAL DISORDER [None]
